FAERS Safety Report 5895911-4 (Version None)
Quarter: 2008Q3

REPORT INFORMATION
  Report Type: 
  Country: None (occurrence: None)
  Receive Date: 20080924
  Receipt Date: 20080922
  Transmission Date: 20090109
  Serious: Yes (Hospitalization, Other)
  Sender: FDA-Public Use
  Company Number: JP-ROXANE LABORATORIES, INC.-2008-RO-00059RO

PATIENT
  Age: 62 Year
  Sex: Female
  Weight: 57 kg

DRUGS (13)
  1. METHOTREXATE [Suspect]
     Indication: RHEUMATOID ARTHRITIS
     Dates: start: 20040901, end: 20060101
  2. PREDNISOLONE [Suspect]
     Indication: RHEUMATOID ARTHRITIS
     Dates: start: 20040901
  3. PREDNISOLONE [Suspect]
  4. PREDNISOLONE [Suspect]
  5. METHYLPREDNISOLONE [Concomitant]
     Indication: PNEUMONIA
  6. METHYLPREDNISOLONE [Concomitant]
     Indication: ALVEOLITIS
  7. METHYLPREDNISOLONE [Concomitant]
     Indication: CYST
  8. METHYLPREDNISOLONE [Concomitant]
     Indication: AMYLOIDOSIS
  9. TRIMETHOPRIM-SULPHAMETHOXAZOLE [Concomitant]
     Indication: PNEUMONIA
     Dosage: 6G
     Route: 048
  10. TRIMETHOPRIM-SULPHAMETHOXAZOLE [Concomitant]
     Indication: PNEUMOCYSTIS JIROVECI PNEUMONIA
     Dosage: 9G
  11. TRIMETHOPRIM-SULPHAMETHOXAZOLE [Concomitant]
     Indication: ALVEOLITIS
     Dosage: 4G
  12. TRIMETHOPRIM-SULPHAMETHOXAZOLE [Concomitant]
     Indication: CYST
  13. TRIMETHOPRIM-SULPHAMETHOXAZOLE [Concomitant]
     Indication: AMYLOIDOSIS

REACTIONS (8)
  - ALVEOLITIS [None]
  - AMYLOIDOSIS [None]
  - BLOOD BETA-D-GLUCAN INCREASED [None]
  - CYST [None]
  - FINGER DEFORMITY [None]
  - PNEUMOCYSTIS JIROVECI PNEUMONIA [None]
  - PNEUMONIA [None]
  - UNEVALUABLE EVENT [None]
